FAERS Safety Report 9892418 (Version 1)
Quarter: 2014Q1

REPORT INFORMATION
  Report Type: Spontaneous
  Country: GB (occurrence: GB)
  Receive Date: 20140212
  Receipt Date: 20140212
  Transmission Date: 20141002
  Serious: Yes (Death, Hospitalization)
  Sender: FDA-Public Use
  Company Number: PHFR2014GB001428

PATIENT
  Sex: Female

DRUGS (1)
  1. EVEROLIMUS [Suspect]
     Indication: BREAST CANCER

REACTIONS (4)
  - Death [Fatal]
  - Pneumonitis [Unknown]
  - Fungal infection [Unknown]
  - Malaise [Unknown]
